FAERS Safety Report 26190793 (Version 1)
Quarter: 2025Q4

REPORT INFORMATION
  Report Type: Spontaneous
  Country: RU (occurrence: RU)
  Receive Date: 20251223
  Receipt Date: 20251223
  Transmission Date: 20260117
  Serious: Yes (Life-Threatening, Hospitalization)
  Sender: TEVA
  Company Number: RU-TEVA-VS-3405666

PATIENT
  Age: 65 Year
  Sex: Female

DRUGS (3)
  1. GEMCITABINE [Suspect]
     Active Substance: GEMCITABINE
     Indication: Ovarian cancer stage II
     Route: 065
  2. MITOMYCIN [Suspect]
     Active Substance: MITOMYCIN
     Indication: Ovarian cancer stage II
     Route: 065
  3. BEVACIZUMAB [Suspect]
     Active Substance: BEVACIZUMAB
     Indication: Ovarian cancer stage II
     Dosage: AT INTERVALS OF 3 WEEKS, FOR A TOTAL OF 18-22 COURSES
     Route: 042

REACTIONS (5)
  - Drug hypersensitivity [Unknown]
  - Jaundice acholuric [Unknown]
  - Thrombotic microangiopathy [Recovering/Resolving]
  - Thrombocytopenia [Unknown]
  - Acute kidney injury [Recovering/Resolving]
